FAERS Safety Report 12433969 (Version 2)
Quarter: 2016Q3

REPORT INFORMATION
  Report Type: Report from Study
  Country: US (occurrence: US)
  Receive Date: 20160603
  Receipt Date: 20160706
  Transmission Date: 20161109
  Serious: Yes (Other)
  Sender: FDA-Public Use
  Company Number: US-BAYER-2016-103292

PATIENT
  Age: 53 Year
  Sex: Female

DRUGS (1)
  1. BETASERON [Suspect]
     Active Substance: INTERFERON BETA-1B
     Indication: MULTIPLE SCLEROSIS
     Dosage: 6 MIU, QOD
     Route: 058
     Dates: start: 20160415, end: 20160518

REACTIONS (11)
  - Malaise [Recovered/Resolved]
  - Aphasia [Recovered/Resolved]
  - Petit mal epilepsy [Recovered/Resolved]
  - Pyrexia [Not Recovered/Not Resolved]
  - Memory impairment [Recovered/Resolved]
  - Disorientation [Not Recovered/Not Resolved]
  - Mental impairment [Recovered/Resolved]
  - Loss of consciousness [Recovered/Resolved]
  - Muscular weakness [Recovered/Resolved]
  - Petit mal epilepsy [Recovered/Resolved]
  - Petit mal epilepsy [Recovered/Resolved]

NARRATIVE: CASE EVENT DATE: 201605
